FAERS Safety Report 14937245 (Version 1)
Quarter: 2018Q2

REPORT INFORMATION
  Report Type: Spontaneous
  Country: US (occurrence: US)
  Receive Date: 20180525
  Receipt Date: 20180525
  Transmission Date: 20180711
  Serious: Yes (Hospitalization)
  Sender: FDA-Public Use
  Company Number: PHEH2018US019367

PATIENT
  Age: 50 Year
  Sex: Male

DRUGS (1)
  1. VOTRIENT [Suspect]
     Active Substance: PAZOPANIB HYDROCHLORIDE
     Indication: PROSTATE CANCER
     Dosage: 4 DF, QD
     Route: 065
     Dates: start: 20180413, end: 20180515

REACTIONS (2)
  - Product use in unapproved indication [Unknown]
  - Pyrexia [Unknown]

NARRATIVE: CASE EVENT DATE: 20180413
